FAERS Safety Report 25662653 (Version 3)
Quarter: 2025Q3

REPORT INFORMATION
  Report Type: Spontaneous
  Country: BR (occurrence: BR)
  Receive Date: 20250811
  Receipt Date: 20250907
  Transmission Date: 20251020
  Serious: Yes (Other)
  Sender: JOHNSON AND JOHNSON
  Company Number: BR-JNJFOC-20250809756

PATIENT
  Sex: Female

DRUGS (1)
  1. TRABECTEDIN [Suspect]
     Active Substance: TRABECTEDIN
     Indication: Liposarcoma metastatic
     Route: 065
     Dates: start: 20250708

REACTIONS (11)
  - Intracranial pressure increased [Recovering/Resolving]
  - Nausea [Recovering/Resolving]
  - Oedema [Recovering/Resolving]
  - Diplopia [Recovering/Resolving]
  - Photophobia [Recovering/Resolving]
  - Migraine [Recovering/Resolving]
  - Hypoacusis [Recovering/Resolving]
  - Hypotension [Recovering/Resolving]
  - Visual impairment [Recovering/Resolving]
  - Headache [Recovering/Resolving]
  - Vision blurred [Recovering/Resolving]

NARRATIVE: CASE EVENT DATE: 20250701
